FAERS Safety Report 7604709-8 (Version None)
Quarter: 2011Q3

REPORT INFORMATION
  Report Type: 
  Country: None (occurrence: None)
  Receive Date: 20110712
  Receipt Date: 20110702
  Transmission Date: 20111222
  Serious: Yes (Other)
  Sender: FDA-Public Use
  Company Number: AT-ALLERGAN-1109219US

PATIENT
  Sex: Male

DRUGS (1)
  1. TROSPIUM CHLORIDE [Suspect]
     Indication: MICTURITION URGENCY
     Dosage: UNK
     Route: 048
     Dates: start: 20110627

REACTIONS (6)
  - ILEUS PARALYTIC [None]
  - CONSTIPATION [None]
  - ACCIDENTAL OVERDOSE [None]
  - NEUROGENIC BLADDER [None]
  - OLIGURIA [None]
  - URETERIC STENOSIS [None]
